FAERS Safety Report 9508551 (Version 1)
Quarter: 2013Q1

REPORT INFORMATION
  Report Type: Spontaneous
  Country: US (occurrence: None)
  Receive Date: 20130305
  Receipt Date: 20130305
  Transmission Date: 20140127
  Serious: Yes (Other)
  Sender: FDA-Public Use
  Company Number: 163-21880-12081259

PATIENT
  Age: 60 Year
  Sex: Male

DRUGS (2)
  1. REVLIMID [Suspect]
     Indication: PLASMA CELL MYELOMA
     Dosage: 15 MG, 21 IN 21 D, PO
     Dates: start: 20110624
  2. PREVACID (LANSOPRAZOLE) (UNKNOWN) [Concomitant]

REACTIONS (5)
  - Hypogeusia [None]
  - Dysphagia [None]
  - Muscle spasms [None]
  - Muscular weakness [None]
  - Dyspepsia [None]
